FAERS Safety Report 5569128-7 (Version None)
Quarter: 2007Q4

REPORT INFORMATION
  Report Type: 
  Country: None (occurrence: None)
  Receive Date: 20071220
  Receipt Date: 20070724
  Transmission Date: 20080405
  Serious: No
  Sender: FDA-Public Use
  Company Number: A0666059A

PATIENT
  Age: 57 Year
  Sex: Male

DRUGS (6)
  1. AVODART [Suspect]
     Indication: BENIGN PROSTATIC HYPERPLASIA
     Dosage: 5MG PER DAY
     Route: 048
     Dates: start: 20070702
  2. TERAZOSIN HCL [Concomitant]
  3. ASPIRIN [Concomitant]
  4. ZINC [Concomitant]
  5. VITAMIN [Concomitant]
  6. SAW PALMETTO [Concomitant]

REACTIONS (5)
  - BLOOD PRESSURE ABNORMAL [None]
  - FLUSHING [None]
  - HANGOVER [None]
  - HEADACHE [None]
  - PROSTATIC PAIN [None]
